FAERS Safety Report 9479140 (Version 2)
Quarter: 2013Q3

REPORT INFORMATION
  Report Type: Report from Study
  Country: US (occurrence: US)
  Receive Date: 20130827
  Receipt Date: 20130827
  Transmission Date: 20140515
  Serious: Yes (Life-Threatening, Hospitalization)
  Sender: FDA-Public Use
  Company Number: US-BRISTOL-MYERS SQUIBB COMPANY-16496457

PATIENT
  Age: 76 Year
  Sex: Male

DRUGS (7)
  1. WARFARIN SODIUM [Suspect]
     Indication: EMBOLISM
     Dosage: ALSO 10MG BID
     Route: 048
     Dates: start: 20120329, end: 20120401
  2. ENOXAPARIN SODIUM [Suspect]
     Indication: EMBOLISM
     Dosage: 1DF=0.8ML OF 150MG SYRINGE
     Route: 058
     Dates: start: 20120329, end: 20120401
  3. PLACEBO [Suspect]
     Indication: EMBOLISM
     Dates: start: 20120329, end: 20120401
  4. ASA [Concomitant]
  5. ATORVASTATIN [Concomitant]
     Dates: start: 20080711
  6. ATENOLOL [Concomitant]
     Dates: start: 20070202
  7. ESCITALOPRAM [Concomitant]

REACTIONS (1)
  - Pulmonary embolism [Not Recovered/Not Resolved]
